FAERS Safety Report 8268048-7 (Version None)
Quarter: 2012Q2

REPORT INFORMATION
  Report Type: 
  Country: None (occurrence: None)
  Receive Date: 20120409
  Receipt Date: 20120329
  Transmission Date: 20120825
  Serious: Yes (Hospitalization, Other)
  Sender: FDA-Public Use
  Company Number: US-BAYER-2012-028104

PATIENT
  Age: 70 Year
  Sex: Female

DRUGS (1)
  1. SORAFENIB (RAF KINASE INHIBITOR) [Suspect]
     Indication: HEPATIC NEOPLASM MALIGNANT
     Dosage: 400 MG, BID
     Route: 048
     Dates: start: 20120114, end: 20120125

REACTIONS (6)
  - PLATELET COUNT DECREASED [None]
  - CONFUSIONAL STATE [None]
  - BODY TEMPERATURE INCREASED [None]
  - SYNCOPE [None]
  - AMMONIA ABNORMAL [None]
  - FACE INJURY [None]
